FAERS Safety Report 7155050-1 (Version None)
Quarter: 2010Q4

REPORT INFORMATION
  Report Type: 
  Country: None (occurrence: None)
  Receive Date: 20101214
  Receipt Date: 20100127
  Transmission Date: 20110411
  Serious: Yes (Other)
  Sender: FDA-Public Use
  Company Number: US-AMGEN-QUU370362

PATIENT

DRUGS (9)
  1. ENBREL [Suspect]
     Indication: PSORIASIS
     Dosage: 50 MG, QWK
     Route: 058
     Dates: start: 20060301
  2. FLUTICASONE PROPIONATE [Concomitant]
     Dosage: UNK UNK, UNK
  3. UNSPECIFIED TOPICAL PRODUCT [Concomitant]
  4. CALCIPOTRIENE [Concomitant]
     Dosage: UNK UNK, UNK
     Route: 061
  5. BETAMETHASONE [Concomitant]
     Dosage: UNK UNK, UNK
     Route: 061
  6. HYDROCORTISONE [Concomitant]
     Dosage: UNK UNK, UNK
     Route: 061
  7. KETOCONAZOLE [Concomitant]
     Dosage: UNK UNK, UNK
     Route: 061
  8. ZINC [Concomitant]
     Dosage: UNK UNK, UNK
     Route: 061
  9. UNSPECIFIED MEDICATION [Concomitant]

REACTIONS (1)
  - HEPATIC ENZYME INCREASED [None]
